FAERS Safety Report 18213782 (Version 1)
Quarter: 2020Q3

REPORT INFORMATION
  Report Type: Spontaneous
  Country: US (occurrence: US)
  Receive Date: 20200829
  Receipt Date: 20200829
  Transmission Date: 20201103
  Serious: Yes (Death, Hospitalization)
  Sender: FDA-Public Use
  Company Number: None

PATIENT
  Sex: Male
  Weight: 101.3 kg

DRUGS (3)
  1. DEXAMETHASONE. [Suspect]
     Active Substance: DEXAMETHASONE
     Dates: end: 20190601
  2. LENALIDOMIDE [Suspect]
     Active Substance: LENALIDOMIDE
     Dates: end: 20190603
  3. VELCADE [Suspect]
     Active Substance: BORTEZOMIB
     Dates: end: 20190531

REACTIONS (5)
  - Asthenia [None]
  - Ammonia increased [None]
  - Confusional state [None]
  - Metastases to liver [None]
  - Plasma cell myeloma [None]

NARRATIVE: CASE EVENT DATE: 20190615
